FAERS Safety Report 7236632-5 (Version None)
Quarter: 2011Q1

REPORT INFORMATION
  Report Type: 
  Country: None (occurrence: None)
  Receive Date: 20110120
  Receipt Date: 20110111
  Transmission Date: 20110831
  Serious: No
  Sender: FDA-Public Use
  Company Number: US-B.I. PHARMACEUTICALS,INC./RIDGEFIELD-2011-BP-01072BP

PATIENT
  Sex: Male

DRUGS (2)
  1. PRADAXA [Suspect]
     Dosage: 150 MG
     Dates: start: 20110111
  2. PRADAXA [Suspect]
     Dosage: 300 MG
     Dates: start: 20101101, end: 20110110

REACTIONS (2)
  - BLOOD URINE PRESENT [None]
  - CYSTITIS [None]
